FAERS Safety Report 10170878 (Version 1)
Quarter: 2014Q2

REPORT INFORMATION
  Report Type: Spontaneous
  Country: VE (occurrence: None)
  Receive Date: 20140512
  Receipt Date: 20140512
  Transmission Date: 20141212
  Serious: Yes (Death)
  Sender: FDA-Public Use
  Company Number: 2014MPI00492

PATIENT
  Age: 44 Year
  Sex: Male

DRUGS (2)
  1. ADCETRIS (BRENTUXIMAB VEDOTIN) INJECTION [Suspect]
     Indication: HODGKIN^S DISEASE
     Dosage: 150 MG, Q21D, INTRAVENOUS
     Route: 042
  2. BLEOMICINA [Concomitant]

REACTIONS (2)
  - Acute respiratory failure [None]
  - Respiratory distress [None]
